FAERS Safety Report 18924590 (Version 2)
Quarter: 2022Q1

REPORT INFORMATION
  Report Type: Spontaneous
  Country: US (occurrence: US)
  Receive Date: 20210222
  Receipt Date: 20220131
  Transmission Date: 20220423
  Serious: No
  Sender: FDA-Public Use
  Company Number: US-PFIZER INC-2021153191

PATIENT
  Age: 63 Year
  Sex: Female

DRUGS (1)
  1. XELJANZ XR [Suspect]
     Active Substance: TOFACITINIB CITRATE
     Indication: Irritable bowel syndrome
     Dosage: 11 MG

REACTIONS (5)
  - Off label use [Unknown]
  - Circumstance or information capable of leading to medication error [Unknown]
  - Flatulence [Unknown]
  - Abdominal distension [Unknown]
  - COVID-19 [Unknown]
